FAERS Safety Report 8914743 (Version 3)
Quarter: 2013Q1

REPORT INFORMATION
  Report Type: Spontaneous
  Country: SE (occurrence: SE)
  Receive Date: 20121119
  Receipt Date: 20130129
  Transmission Date: 20140127
  Serious: Yes (Hospitalization)
  Sender: FDA-Public Use
  Company Number: SE-ASTRAZENECA-2012SE85057

PATIENT
  Sex: Male

DRUGS (12)
  1. ATACAND [Suspect]
     Route: 048
  2. FURIX [Suspect]
     Route: 065
  3. FURIX [Suspect]
  4. BRILIQUE [Concomitant]
     Route: 048
  5. KALCIPOS-D [Concomitant]
  6. LIPITOR (ORIFARM AB) [Concomitant]
  7. BISOPROLOL [Concomitant]
  8. FOLACIN (PFIZER AB) [Concomitant]
  9. BEHEPAN [Concomitant]
  10. DUROFERON [Concomitant]
  11. ENALAPRIL [Concomitant]
  12. TROMBYL (PFIZER AB) [Concomitant]

REACTIONS (2)
  - Orthostatic hypotension [Unknown]
  - Syncope [Unknown]
